FAERS Safety Report 8144503 (Version 5)
Quarter: 2013Q4

REPORT INFORMATION
  Report Type: Spontaneous
  Country: US (occurrence: US)
  Receive Date: 20110920
  Receipt Date: 20131112
  Transmission Date: 20140711
  Serious: Yes (Death, Hospitalization)
  Sender: FDA-Public Use
  Company Number: US-GLAXOSMITHKLINE-B0748399A

PATIENT
  Sex: Male
  Weight: 202.3 kg

DRUGS (1)
  1. AVANDIA [Suspect]
     Indication: DIABETES MELLITUS
     Dosage: 8MG PER DAY
     Route: 048
     Dates: start: 20010618, end: 2011

REACTIONS (6)
  - Cardiac function disturbance postoperative [Fatal]
  - Cardiac valve disease [Unknown]
  - Myocardial infarction [Unknown]
  - Cardiac failure congestive [Unknown]
  - Aortic stenosis [Unknown]
  - Cardiovascular disorder [Unknown]
